FAERS Safety Report 8411661 (Version 6)
Quarter: 2012Q4

REPORT INFORMATION
  Report Type: 
  Country: US (occurrence: US)
  Receive Date: 20111227
  Receipt Date: 20120924
  Transmission Date: 20130627
  Serious: No
  Sender: FDA-Public Use
  Company Number: PHEH2011US05493

PATIENT
  Age: 50 Year
  Sex: Female
  Weight: 57.6 kg

DRUGS (14)
  1. GILENYA [Suspect]
     Indication: MULTIPLE SCLEROSIS
     Dosage: 0.5 mg, QD
     Route: 048
     Dates: start: 20110914
  2. CLONIDINE [Suspect]
     Indication: PANIC ATTACK
     Dosage: 0.1 mg, TID
  3. NEURONTIN [Concomitant]
     Dosage: 1600 mg, TID
  4. CELEXA [Concomitant]
     Dosage: 120 mg, QD
  5. TRAZODONE [Concomitant]
     Dosage: 100 mg, QD
  6. VALIUM [Concomitant]
     Dosage: 10 mg, PRN
  7. PROVIGIL [Concomitant]
     Dosage: 200 mg, QD
  8. SEROQUEL [Concomitant]
     Dosage: UNK UKN, UNK
  9. LITHIUM [Concomitant]
     Dosage: UNK UKN, UNK
  10. TOPAMAX [Concomitant]
     Dosage: UNK UKN, UNK
  11. LAMOTRIGINE [Concomitant]
     Dosage: UNK UKN, UNK
  12. FIORICET [Concomitant]
     Dosage: UNK UKN, UNK
  13. HYDROXYZINE [Concomitant]
     Dosage: UNK UKN, UNK
  14. SYNTHROID [Concomitant]
     Dosage: UNK UKN, UNK

REACTIONS (4)
  - Vertigo [Recovered/Resolved]
  - Feeling abnormal [Recovered/Resolved]
  - Asthenia [Recovered/Resolved]
  - Dizziness [Recovered/Resolved]
